FAERS Safety Report 6129254-0 (Version None)
Quarter: 2009Q1

REPORT INFORMATION
  Report Type: 
  Country: None (occurrence: None)
  Receive Date: 20090324
  Receipt Date: 20090317
  Transmission Date: 20090719
  Serious: Yes (Death)
  Sender: FDA-Public Use
  Company Number: US-ROCHE-622537

PATIENT
  Sex: Male

DRUGS (3)
  1. KLONOPIN [Suspect]
     Indication: POST-TRAUMATIC STRESS DISORDER
     Route: 065
  2. PAXIL [Suspect]
     Indication: POST-TRAUMATIC STRESS DISORDER
     Route: 065
  3. SEROQUEL [Suspect]
     Indication: POST-TRAUMATIC STRESS DISORDER
     Route: 065

REACTIONS (2)
  - DRUG TOXICITY [None]
  - WRONG DRUG ADMINISTERED [None]
